FAERS Safety Report 7897442-9 (Version None)
Quarter: 2011Q4

REPORT INFORMATION
  Report Type: 
  Country: None (occurrence: None)
  Receive Date: 20111107
  Receipt Date: 20111101
  Transmission Date: 20120403
  Serious: Yes (Hospitalization, Other)
  Sender: FDA-Public Use
  Company Number: US-JNJFOC-20081205871

PATIENT
  Sex: Male
  Weight: 99.34 kg

DRUGS (9)
  1. SEROQUEL [Suspect]
     Indication: SCHIZOPHRENIA, PARANOID TYPE
     Route: 065
  2. ZYPREXA [Suspect]
     Indication: SCHIZOPHRENIA, PARANOID TYPE
     Route: 065
  3. RISPERDAL [Suspect]
     Indication: DEPRESSION
     Route: 048
  4. ZYPREXA [Suspect]
     Indication: ANXIETY
     Route: 065
  5. RISPERDAL [Suspect]
     Indication: ANXIETY
     Route: 048
  6. SEROQUEL [Suspect]
     Indication: DEPRESSION
     Route: 065
  7. SEROQUEL [Suspect]
     Indication: ANXIETY
     Route: 065
  8. ZYPREXA [Suspect]
     Indication: DEPRESSION
     Route: 065
  9. RISPERDAL [Suspect]
     Indication: SCHIZOPHRENIA, PARANOID TYPE
     Route: 048

REACTIONS (1)
  - INSULIN-REQUIRING TYPE 2 DIABETES MELLITUS [None]
